FAERS Safety Report 12704752 (Version 1)
Quarter: 2016Q3

REPORT INFORMATION
  Report Type: Report from Study
  Country: US (occurrence: US)
  Receive Date: 20160831
  Receipt Date: 20160831
  Transmission Date: 20161109
  Serious: Yes (Other)
  Sender: FDA-Public Use
  Company Number: US-ACTELION-A-US2016-141286

PATIENT
  Age: 66 Year
  Sex: Female

DRUGS (1)
  1. TRACLEER [Suspect]
     Active Substance: BOSENTAN
     Indication: PULMONARY ARTERIAL HYPERTENSION
     Dosage: 125 MG, BID
     Route: 048
     Dates: start: 20080221

REACTIONS (7)
  - Blood immunoglobulin G increased [Unknown]
  - Vaginal infection [Recovered/Resolved]
  - Mean cell haemoglobin decreased [Unknown]
  - Platelet count decreased [Unknown]
  - Red cell distribution width increased [Unknown]
  - Neutrophil count increased [Unknown]
  - Lymphocyte count decreased [Unknown]

NARRATIVE: CASE EVENT DATE: 20160622
